FAERS Safety Report 9121273 (Version 1)
Quarter: 2013Q1

REPORT INFORMATION
  Report Type: Spontaneous
  Country: TR (occurrence: TR)
  Receive Date: 20130225
  Receipt Date: 20130225
  Transmission Date: 20140127
  Serious: Yes (Hospitalization)
  Sender: FDA-Public Use
  Company Number: TR-PFIZER INC-2013060305

PATIENT
  Age: 57 Year
  Sex: Female

DRUGS (2)
  1. IRINOTECAN HCL [Suspect]
     Indication: BREAST CANCER
     Dosage: 60 MG/M2 EVERY 2 WEEKS
     Dates: start: 201201
  2. TRASTUZUMAB [Concomitant]
     Indication: BREAST CANCER
     Dosage: 2 MG/KG ON DAYS 1, 8, 15, 22
     Dates: start: 201201

REACTIONS (3)
  - Hypokalaemia [Recovered/Resolved]
  - Hypocalcaemia [Recovered/Resolved]
  - Diarrhoea [Unknown]
